FAERS Safety Report 18124820 (Version 1)
Quarter: 2020Q3

REPORT INFORMATION
  Report Type: Spontaneous
  Country: US (occurrence: US)
  Receive Date: 20200807
  Receipt Date: 20200807
  Transmission Date: 20201103
  Serious: Yes (Other)
  Sender: FDA-Public Use
  Company Number: US-JNJFOC-20200810190

PATIENT
  Age: 77 Year
  Sex: Male

DRUGS (2)
  1. TRAMADOL HYDROCHLORIDE. [Suspect]
     Active Substance: TRAMADOL HYDROCHLORIDE
     Indication: PRODUCT USED FOR UNKNOWN INDICATION
     Dosage: 50 MILLIGRAM
     Route: 048
  2. TYROSINE KINASE INHIBITORS [Suspect]
     Active Substance: UNSPECIFIED INGREDIENT
     Indication: LUNG ADENOCARCINOMA STAGE IV
     Dosage: UNK
     Route: 065

REACTIONS (1)
  - Amylase increased [Unknown]
